FAERS Safety Report 7629683-X (Version None)
Quarter: 2011Q3

REPORT INFORMATION
  Report Type: 
  Country: None (occurrence: None)
  Receive Date: 20110722
  Receipt Date: 20110715
  Transmission Date: 20111222
  Serious: Yes (Life-Threatening, Hospitalization)
  Sender: FDA-Public Use
  Company Number: US-JNJFOC-20110706935

PATIENT
  Age: 27 Year
  Sex: Male

DRUGS (3)
  1. FLEXERIL [Suspect]
     Indication: BACK PAIN
     Dates: end: 20110124
  2. MOTRIN [Suspect]
     Indication: BACK PAIN
     Dates: end: 20110124
  3. ULTRACET [Suspect]
     Indication: BACK PAIN
     Route: 065
     Dates: end: 20110124

REACTIONS (3)
  - UNRESPONSIVE TO STIMULI [None]
  - INTENTIONAL DRUG MISUSE [None]
  - MULTIPLE DRUG OVERDOSE [None]
